FAERS Safety Report 17136056 (Version 2)
Quarter: 2020Q1

REPORT INFORMATION
  Report Type: Spontaneous
  Country: GB (occurrence: GB)
  Receive Date: 20191210
  Receipt Date: 20200113
  Transmission Date: 20200409
  Serious: Yes (Other)
  Sender: FDA-Public Use
  Company Number: GB-ACTELION-A-CH2019-199251

PATIENT
  Age: 45 Year
  Sex: Male

DRUGS (2)
  1. EPOPROSTENOL SODIUM. [Suspect]
     Active Substance: EPOPROSTENOL SODIUM
     Indication: THROMBOSIS PROPHYLAXIS
     Route: 042
  2. ENOXAPARIN [Concomitant]
     Active Substance: ENOXAPARIN

REACTIONS (4)
  - Haemorrhage [Unknown]
  - Hypotension [Unknown]
  - Spinal cord ischaemia [Unknown]
  - Sensory loss [Unknown]
